FAERS Safety Report 7962122-8 (Version None)
Quarter: 2011Q4

REPORT INFORMATION
  Report Type: 
  Country: None (occurrence: None)
  Receive Date: 20111207
  Receipt Date: 20111128
  Transmission Date: 20120403
  Serious: Yes (Hospitalization)
  Sender: FDA-Public Use
  Company Number: DE-TEVA-311026GER

PATIENT
  Age: 31 Year
  Sex: Male

DRUGS (2)
  1. MIRTAZAPINE [Suspect]
     Indication: DEPRESSION
     Route: 048
  2. ZOPICLONE [Suspect]
     Indication: DEPRESSION
     Route: 048

REACTIONS (1)
  - RHABDOMYOLYSIS [None]
